FAERS Safety Report 21973974 (Version 1)
Quarter: 2023Q1

REPORT INFORMATION
  Report Type: Spontaneous
  Country: US (occurrence: US)
  Receive Date: 20230209
  Receipt Date: 20230209
  Transmission Date: 20230417
  Serious: Yes (Hospitalization)
  Sender: FDA-Public Use
  Company Number: US-BRISTOL-MYERS SQUIBB COMPANY-2023-019057

PATIENT
  Age: 69 Year
  Sex: Female

DRUGS (2)
  1. POMALYST [Suspect]
     Active Substance: POMALIDOMIDE
     Indication: Plasma cell myeloma in remission
  2. POMALYST [Suspect]
     Active Substance: POMALIDOMIDE
     Dosage: 1 CAPSULE (3MG) BY MOUTH 3 TIMES PER WEEK ON MONDAY, WEDNESDAY, AND FRIDAY FOR DAYS 1-21, THEN OFF D
     Route: 048
     Dates: start: 202209

REACTIONS (4)
  - Contusion [Unknown]
  - Red blood cell count decreased [Unknown]
  - Platelet count decreased [Unknown]
  - Off label use [Unknown]
